FAERS Safety Report 7627952-0 (Version None)
Quarter: 2011Q3

REPORT INFORMATION
  Report Type: 
  Country: None (occurrence: None)
  Receive Date: 20110722
  Receipt Date: 20110713
  Transmission Date: 20111222
  Serious: Yes (Other)
  Sender: FDA-Public Use
  Company Number: NL-AMGEN-NLDSP2011027954

PATIENT
  Age: 60 Year
  Sex: Female

DRUGS (7)
  1. METFORMIN HCL [Concomitant]
     Dosage: UNK
     Dates: start: 20090901, end: 20110520
  2. COZAAR [Concomitant]
     Dosage: UNK
  3. OMEPRAZOLE [Concomitant]
     Dosage: UNK
  4. ENBREL [Suspect]
     Indication: RHEUMATOID ARTHRITIS
     Dosage: 50 MG, QWK
  5. LIPITOR [Concomitant]
     Dosage: UNK
  6. METHOTREXATE SODIUM [Concomitant]
     Dosage: 15 MG, UNK
     Dates: start: 20110329, end: 20110520
  7. NIFEDIPINE [Concomitant]
     Dosage: UNK

REACTIONS (2)
  - HYPOGLYCAEMIA [None]
  - DIZZINESS [None]
